FAERS Safety Report 18987707 (Version 5)
Quarter: 2021Q2

REPORT INFORMATION
  Report Type: Report from Study
  Country: FR (occurrence: FR)
  Receive Date: 20210309
  Receipt Date: 20210506
  Transmission Date: 20210717
  Serious: Yes (Hospitalization, Other)
  Sender: FDA-Public Use
  Company Number: FR-JNJFOC-20210205498

PATIENT
  Age: 34 Year
  Sex: Female

DRUGS (13)
  1. LORMETAZEPAM [Concomitant]
     Active Substance: LORMETAZEPAM
     Indication: INSOMNIA
     Dates: start: 20201210
  2. PAROXETINE. [Concomitant]
     Active Substance: PAROXETINE
     Indication: ANTIDEPRESSANT THERAPY
     Route: 048
     Dates: start: 20201229, end: 20210324
  3. SPRAVATO [Suspect]
     Active Substance: ESKETAMINE
     Dates: start: 20210301
  4. MIRTAZAPINE. [Concomitant]
     Active Substance: MIRTAZAPINE
     Dates: start: 20210325
  5. TERALITHE [Concomitant]
     Active Substance: LITHIUM CARBONATE
     Indication: AFFECTIVE DISORDER
     Dates: start: 20201210
  6. MOCLAMINE [Concomitant]
     Active Substance: MOCLOBEMIDE
     Dates: start: 20210325
  7. MIRTAZAPINE. [Concomitant]
     Active Substance: MIRTAZAPINE
     Indication: ANTIDEPRESSANT THERAPY
     Dates: start: 20190101, end: 20190131
  8. TOFRANIL [Concomitant]
     Active Substance: IMIPRAMINE HYDROCHLORIDE
     Dates: start: 20190101, end: 20190131
  9. VENLAFAXINE [Concomitant]
     Active Substance: VENLAFAXINE HYDROCHLORIDE
     Dates: start: 20200101, end: 20200131
  10. THERALENE [Concomitant]
     Active Substance: TRIMEPRAZINE
     Indication: AFFECTIVE DISORDER
     Dates: start: 20201210
  11. LITHIUM. [Concomitant]
     Active Substance: LITHIUM
     Indication: ANTIDEPRESSANT THERAPY
     Dates: start: 20201210, end: 20201228
  12. MOCLAMINE [Concomitant]
     Active Substance: MOCLOBEMIDE
     Indication: ANTIDEPRESSANT THERAPY
     Dates: start: 20201204, end: 20201228
  13. SPRAVATO [Suspect]
     Active Substance: ESKETAMINE
     Indication: DEPRESSION
     Dates: start: 20201229

REACTIONS (20)
  - Suicidal ideation [Not Recovered/Not Resolved]
  - Libido disorder [Recovered/Resolved]
  - Anhedonia [Not Recovered/Not Resolved]
  - Insomnia [Not Recovered/Not Resolved]
  - Depressed mood [Not Recovered/Not Resolved]
  - Anxiety [Not Recovered/Not Resolved]
  - Affect lability [Not Recovered/Not Resolved]
  - Weight decreased [Not Recovered/Not Resolved]
  - Off label use [Unknown]
  - Depression [Unknown]
  - Gastrointestinal motility disorder [Recovered/Resolved]
  - Personality change [Not Recovered/Not Resolved]
  - Feeling guilty [Recovered/Resolved]
  - Irritability [Not Recovered/Not Resolved]
  - Psychiatric symptom [Recovered/Resolved]
  - Morbid thoughts [Not Recovered/Not Resolved]
  - Decreased appetite [Recovered/Resolved]
  - Anxiety [Not Recovered/Not Resolved]
  - Dissociative disorder [Recovered/Resolved]
  - Drug ineffective [Unknown]

NARRATIVE: CASE EVENT DATE: 20201210
